FAERS Safety Report 9853197 (Version 1)
Quarter: 2014Q1

REPORT INFORMATION
  Report Type: Spontaneous
  Country: US (occurrence: US)
  Receive Date: 20140129
  Receipt Date: 20140129
  Transmission Date: 20141002
  Serious: No
  Sender: FDA-Public Use
  Company Number: US-BRACCO-009137

PATIENT
  Sex: 0

DRUGS (1)
  1. MULTIHANCE [Suspect]
     Indication: MAGNETIC RESONANCE CHOLANGIOPANCREATOGRAPHY
     Dosage: GIVEN WITH PINEAPPLE JUICE
     Route: 048

REACTIONS (1)
  - Incorrect route of drug administration [Unknown]
